FAERS Safety Report 24767098 (Version 1)
Quarter: 2024Q4

REPORT INFORMATION
  Report Type: Report from Study
  Country: US (occurrence: US)
  Receive Date: 20241223
  Receipt Date: 20241223
  Transmission Date: 20250114
  Serious: Yes (Death)
  Sender: TEVA
  Company Number: US-TEVA-VS-3277127

PATIENT

DRUGS (7)
  1. PREDNISONE [Suspect]
     Active Substance: PREDNISONE
     Indication: Immune thrombocytopenia
     Route: 065
  2. EFAVIRENZ\EMTRICITABINE\TENOFOVIR\TENOFOVIR DISOPROXIL FUMARATE [Concomitant]
     Active Substance: EFAVIRENZ\EMTRICITABINE\TENOFOVIR\TENOFOVIR DISOPROXIL FUMARATE
     Indication: HIV infection
     Route: 065
  3. ROMIPLOSTIM [Suspect]
     Active Substance: ROMIPLOSTIM
     Indication: Immune thrombocytopenia
     Route: 065
  4. ELTROMBOPAG [Suspect]
     Active Substance: ELTROMBOPAG
     Indication: Immune thrombocytopenia
     Route: 065
  5. RITUXIMAB [Suspect]
     Active Substance: RITUXIMAB
     Indication: Immune thrombocytopenia
     Route: 065
  6. DEXAMETHASONE [Suspect]
     Active Substance: DEXAMETHASONE
     Indication: Immune thrombocytopenia
     Route: 065
  7. IMMUNE GLOBULIN NOS [Suspect]
     Active Substance: IMMUNE GLOBULIN NOS
     Indication: Immune thrombocytopenia
     Route: 065

REACTIONS (1)
  - Treatment failure [Fatal]
